FAERS Safety Report 8176303-4 (Version None)
Quarter: 2012Q1

REPORT INFORMATION
  Report Type: 
  Country: None (occurrence: None)
  Receive Date: 20120301
  Receipt Date: 20120222
  Transmission Date: 20120608
  Serious: Yes (Hospitalization, Other)
  Sender: FDA-Public Use
  Company Number: CA-COVIDIEN/TYCO HEALTHCARE/MALLINCKRODT-T201200681

PATIENT
  Age: 52 Year
  Sex: Male

DRUGS (4)
  1. HYDROMORPHONE HCL [Suspect]
     Indication: BACK PAIN
     Dosage: 12 MG/DAY (50 MG/ML SOLUTION)
     Route: 037
  2. HYDROMORPHONE HCL [Suspect]
     Dosage: 12 MG VIA PCA
  3. MORPHINE [Suspect]
     Dosage: UNK
     Route: 037
  4. MORPHINE [Suspect]
     Indication: BACK PAIN
     Dosage: 10 MG IV OVER 30 MIN
     Route: 042

REACTIONS (3)
  - HYPERAESTHESIA [None]
  - MYOCLONUS [None]
  - TOXICITY TO VARIOUS AGENTS [None]
